FAERS Safety Report 9713258 (Version 1)
Quarter: 2013Q4

REPORT INFORMATION
  Report Type: Spontaneous
  Country: US (occurrence: None)
  Receive Date: 20131125
  Receipt Date: 20131125
  Transmission Date: 20140711
  Serious: Yes (Hospitalization)
  Sender: FDA-Public Use
  Company Number: None

PATIENT
  Age: 80 Year
  Sex: Female
  Weight: 74 kg

DRUGS (14)
  1. ERLOTINIB [Suspect]
     Indication: LUNG CARCINOMA CELL TYPE UNSPECIFIED STAGE IV
     Route: 048
     Dates: start: 20130710, end: 20131117
  2. GABAPENTIN [Concomitant]
  3. ASA [Concomitant]
  4. MULTIVITAMIN [Concomitant]
  5. GLUCOPHAGE [Concomitant]
  6. HCTZ [Concomitant]
  7. OS-CAL [Concomitant]
  8. ENALAPRIL MALEATE [Concomitant]
  9. IMODIUM [Concomitant]
  10. SENOKOT [Concomitant]
  11. NASONEX [Concomitant]
  12. SINGULAIR [Concomitant]
  13. ERLOTINIB [Concomitant]
  14. HYOSCAMINE [Concomitant]

REACTIONS (3)
  - Abdominal pain [None]
  - Vomiting [None]
  - Syncope [None]
